FAERS Safety Report 6039860-X (Version None)
Quarter: 2009Q1

REPORT INFORMATION
  Report Type: 
  Country: None (occurrence: None)
  Receive Date: 20090116
  Receipt Date: 20090108
  Transmission Date: 20090719
  Serious: Yes (Other)
  Sender: FDA-Public Use
  Company Number: US-AMGEN-QUU325947

PATIENT
  Sex: Female

DRUGS (25)
  1. ENBREL [Suspect]
     Indication: PSORIATIC ARTHROPATHY
     Route: 058
     Dates: start: 20040422
  2. ENBREL [Suspect]
     Indication: PSORIASIS
  3. FELDENE [Concomitant]
  4. ZETIA [Concomitant]
  5. AVAPRO [Concomitant]
  6. CRESTOR [Concomitant]
  7. TRICOR [Concomitant]
  8. ADVAIR DISKUS 100/50 [Concomitant]
  9. ALBUTEROL [Concomitant]
  10. FLONASE [Concomitant]
  11. ZYRTEC [Concomitant]
  12. GLYBURIDE [Concomitant]
  13. JANUVIA [Concomitant]
  14. METFORMIN [Concomitant]
  15. LEVOXYL [Concomitant]
  16. ACTOS [Concomitant]
  17. PROZAC [Concomitant]
  18. FLEXERIL [Concomitant]
  19. POTASSIUM CHLORIDE [Concomitant]
  20. NEXIUM [Concomitant]
  21. LASIX [Concomitant]
  22. VICODIN [Concomitant]
  23. ASPIRIN [Concomitant]
  24. FIORICET [Concomitant]
  25. DESYREL [Concomitant]

REACTIONS (9)
  - ADVERSE DRUG REACTION [None]
  - ANIMAL SCRATCH [None]
  - ARTHRITIS [None]
  - FALL [None]
  - LOCALISED INFECTION [None]
  - LOSS OF CONSCIOUSNESS [None]
  - MUSCULOSKELETAL PAIN [None]
  - RENAL IMPAIRMENT [None]
  - ROTATOR CUFF SYNDROME [None]
